FAERS Safety Report 4324834-7 (Version None)
Quarter: 2004Q1

REPORT INFORMATION
  Report Type: 
  Country: None (occurrence: None)
  Receive Date: 20040326
  Receipt Date: 20040324
  Transmission Date: 20041129
  Serious: Yes (Life-Threatening)
  Sender: FDA-Public Use
  Company Number: DE-BRISTOL-MYERS SQUIBB COMPANY-12540373

PATIENT
  Age: 79 Year
  Sex: Male
  Weight: 78 kg

DRUGS (3)
  1. PACLITAXEL [Suspect]
     Indication: BLADDER CANCER
  2. CISPLATIN [Suspect]
     Indication: BLADDER CANCER
  3. GEMCITABINE [Suspect]
     Indication: BLADDER CANCER

REACTIONS (3)
  - GENERAL PHYSICAL HEALTH DETERIORATION [None]
  - HYPERTENSIVE CRISIS [None]
  - HYPERTONIA [None]
